FAERS Safety Report 19245394 (Version 5)
Quarter: 2021Q3

REPORT INFORMATION
  Report Type: Report from Study
  Country: FR (occurrence: FR)
  Receive Date: 20210511
  Receipt Date: 20210911
  Transmission Date: 20211014
  Serious: Yes (Life-Threatening, Hospitalization, Other)
  Sender: FDA-Public Use
  Company Number: FR-GILEAD-2021-0529379

PATIENT
  Age: 74 Year
  Sex: Male
  Weight: 72 kg

DRUGS (23)
  1. SACITUZUMAB GOVITECAN. [Suspect]
     Active Substance: SACITUZUMAB GOVITECAN
     Indication: TRANSITIONAL CELL CARCINOMA
     Dosage: 10 MG/KG ON DAY 1 AND 8 OF EACH 21?DAY CYCLE
     Route: 042
     Dates: start: 20210303, end: 20210310
  2. AMIKLIN [AMIKACIN] [Concomitant]
     Indication: PRODUCT USED FOR UNKNOWN INDICATION
     Dosage: UNK
     Route: 065
     Dates: start: 20210317, end: 202103
  3. CIFLOX [CIPROFLOXACIN] [Concomitant]
     Active Substance: CIPROFLOXACIN
     Indication: PRODUCT USED FOR UNKNOWN INDICATION
     Dosage: UNK
     Route: 065
     Dates: start: 202103, end: 202103
  4. METHYLPREDNISOLONE. [Concomitant]
     Active Substance: METHYLPREDNISOLONE
  5. CUBICIN [Concomitant]
     Active Substance: DAPTOMYCIN
     Indication: PRODUCT USED FOR UNKNOWN INDICATION
     Dosage: UNK
     Route: 065
     Dates: start: 20210317, end: 20210322
  6. ATARAX [HYDROXYZINE EMBONATE] [Concomitant]
     Active Substance: HYDROXYZINE PAMOATE
  7. APIXBAN [Concomitant]
     Active Substance: APIXABAN
  8. BISOPROLOL [Concomitant]
     Active Substance: BISOPROLOL
  9. ROSUVASTATIN. [Concomitant]
     Active Substance: ROSUVASTATIN
  10. ONDANSETRAN [Concomitant]
     Active Substance: ONDANSETRON HYDROCHLORIDE
  11. ATEZOLIZUMAB. [Suspect]
     Active Substance: ATEZOLIZUMAB
     Indication: TRANSITIONAL CELL CARCINOMA
     Dosage: 1200 MG, 1 IN 3 WK
     Route: 041
     Dates: start: 20210303, end: 20210303
  12. TAZOCILLINE [Concomitant]
     Active Substance: PIPERACILLIN SODIUM\TAZOBACTAM SODIUM
     Indication: PRODUCT USED FOR UNKNOWN INDICATION
     Dosage: UNK
     Route: 065
     Dates: start: 202103, end: 20210317
  13. DERMOVAL [CLOBETASOL PROPIONATE] [Concomitant]
     Active Substance: CLOBETASOL PROPIONATE
  14. MACROGOL [Concomitant]
     Active Substance: POLYETHYLENE GLYCOLS
  15. DOLIPRANE [Concomitant]
     Active Substance: ACETAMINOPHEN
  16. SODIUM ALGINATE [Concomitant]
     Active Substance: SODIUM ALGINATE
  17. POLARAMIN [Concomitant]
     Active Substance: DEXCHLORPHENIRAMINE MALEATE
  18. NORADRENALINE [NOREPINEPHRINE] [Concomitant]
     Active Substance: NOREPINEPHRINE
     Indication: PRODUCT USED FOR UNKNOWN INDICATION
     Dosage: UNK
     Route: 065
     Dates: start: 20210317, end: 20210319
  19. NEUPOGEN [Concomitant]
     Active Substance: FILGRASTIM
     Indication: PRODUCT USED FOR UNKNOWN INDICATION
     Dosage: UNK
     Route: 065
     Dates: start: 202103, end: 202103
  20. PARACETAMOL [Concomitant]
     Active Substance: ACETAMINOPHEN
  21. MEROPENEM. [Concomitant]
     Active Substance: MEROPENEM
     Indication: PRODUCT USED FOR UNKNOWN INDICATION
     Dosage: UNK
     Route: 065
     Dates: start: 20210317, end: 202103
  22. LINEZOLIDE [Concomitant]
     Active Substance: LINEZOLID
     Indication: PRODUCT USED FOR UNKNOWN INDICATION
     Dosage: UNK
     Route: 065
     Dates: start: 20210323, end: 202103
  23. LEVOTHYROX [Concomitant]
     Active Substance: LEVOTHYROXINE

REACTIONS (2)
  - Sepsis [Recovered/Resolved]
  - Febrile neutropenia [Recovered/Resolved]

NARRATIVE: CASE EVENT DATE: 20210313
